FAERS Safety Report 4891457-0 (Version None)
Quarter: 2005Q4

REPORT INFORMATION
  Report Type: 
  Country: None (occurrence: None)
  Receive Date: 20051220
  Receipt Date: 20050516
  Transmission Date: 20060501
  Serious: Yes (Death, Hospitalization)
  Sender: FDA-Public Use
  Company Number: 200510362BWH

PATIENT
  Age: 15 Month
  Sex: Male

DRUGS (3)
  1. APROTININ [Suspect]
     Indication: HEART DISEASE CONGENITAL
     Dosage: 0.5 ML, TOTAL DAILY, INTRAVENOUS
     Route: 042
     Dates: start: 20050209
  2. APROTININ [Suspect]
     Indication: MITRAL VALVE REPAIR
     Dosage: 0.5 ML, TOTAL DAILY, INTRAVENOUS
     Route: 042
     Dates: start: 20050209
  3. APROTININ [Suspect]
     Indication: TRICUSPID VALVE REPAIR
     Dosage: 0.5 ML, TOTAL DAILY, INTRAVENOUS
     Route: 042
     Dates: start: 20050209

REACTIONS (4)
  - ANAPHYLACTIC REACTION [None]
  - ANAPHYLACTIC SHOCK [None]
  - BLOOD PRESSURE DECREASED [None]
  - RESPIRATORY ACIDOSIS [None]
